FAERS Safety Report 7940557-7 (Version None)
Quarter: 2011Q4

REPORT INFORMATION
  Report Type: 
  Country: None (occurrence: None)
  Receive Date: 20111114
  Receipt Date: 20110627
  Transmission Date: 20120403
  Serious: Yes (Hospitalization, Other)
  Sender: FDA-Public Use
  Company Number: 2011S1000405

PATIENT
  Age: 63 Year
  Sex: Male
  Weight: 148 kg

DRUGS (3)
  1. ZOSYN [Concomitant]
  2. LEVAQUIN [Concomitant]
  3. CUBICIN [Suspect]
     Indication: OSTEOMYELITIS
     Dosage: 1000 MG;QD;IV
     Route: 042
     Dates: start: 20110505, end: 20110522

REACTIONS (2)
  - RESPIRATORY FAILURE [None]
  - EOSINOPHILIC PNEUMONIA [None]
